FAERS Safety Report 24224629 (Version 1)
Quarter: 2024Q3

REPORT INFORMATION
  Report Type: Spontaneous
  Country: US (occurrence: US)
  Receive Date: 20240819
  Receipt Date: 20240819
  Transmission Date: 20241017
  Serious: No
  Sender: ALKERMES
  Company Number: US-ALKERMES INC.-ALK-2024-002068

PATIENT
  Sex: Female

DRUGS (1)
  1. VIVITROL [Suspect]
     Active Substance: NALTREXONE
     Indication: Drug dependence
     Dosage: 380 MILLIGRAM, Q28D
     Route: 030
     Dates: start: 202406

REACTIONS (2)
  - Off label use [Not Recovered/Not Resolved]
  - Injection site mass [Unknown]

NARRATIVE: CASE EVENT DATE: 20240101
